FAERS Safety Report 22267518 (Version 1)
Quarter: 2023Q2

REPORT INFORMATION
  Report Type: Other
  Country: US (occurrence: None)
  Receive Date: 20230429
  Receipt Date: 20230429
  Transmission Date: 20230721
  Serious: Yes (Hospitalization)
  Sender: FDA-Public Use
  Company Number: US-Square-000138

PATIENT
  Age: 62 Year
  Sex: Male

DRUGS (1)
  1. ACYCLOVIR [Suspect]
     Active Substance: ACYCLOVIR
     Indication: Acute febrile neutrophilic dermatosis

REACTIONS (2)
  - Rash [Recovering/Resolving]
  - Arthralgia [Recovering/Resolving]
